FAERS Safety Report 7074081-3 (Version None)
Quarter: 2010Q4

REPORT INFORMATION
  Report Type: 
  Country: None (occurrence: None)
  Receive Date: 20101029
  Receipt Date: 20101018
  Transmission Date: 20110411
  Serious: Yes (Hospitalization, Other)
  Sender: FDA-Public Use
  Company Number: US-PFIZER INC-2010123720

PATIENT
  Age: 65 Year
  Sex: Female

DRUGS (2)
  1. DILANTIN-125 [Suspect]
     Dosage: UNK
  2. KEPPRA [Interacting]
     Dosage: UNK

REACTIONS (1)
  - DRUG INTERACTION [None]
